FAERS Safety Report 6078321-9 (Version None)
Quarter: 2009Q1

REPORT INFORMATION
  Report Type: 
  Country: None (occurrence: None)
  Receive Date: 20090213
  Receipt Date: 20090203
  Transmission Date: 20090719
  Serious: Yes (Hospitalization)
  Sender: FDA-Public Use
  Company Number: AT-WYE-H08069409

PATIENT
  Sex: Female

DRUGS (2)
  1. EFFEXOR XR [Suspect]
     Indication: MAJOR DEPRESSION
     Route: 048
     Dates: start: 20080711, end: 20080724
  2. ESZOPICLONE [Suspect]
     Route: 048
     Dates: start: 20080711, end: 20080724

REACTIONS (7)
  - AGITATION [None]
  - DISORIENTATION [None]
  - DYSARTHRIA [None]
  - FEELING OF DESPAIR [None]
  - INTENTIONAL OVERDOSE [None]
  - SUICIDAL IDEATION [None]
  - SUICIDE ATTEMPT [None]
